FAERS Safety Report 10381656 (Version 1)
Quarter: 2014Q1

REPORT INFORMATION
  Report Type: Spontaneous
  Country: US (occurrence: None)
  Receive Date: 20140306
  Receipt Date: 20140306
  Transmission Date: 20141002
  Serious: Yes (Life-Threatening, Hospitalization)
  Sender: FDA-Public Use
  Company Number: 163-21880-13090266

PATIENT
  Age: 78 Year
  Sex: Male
  Weight: 96.53 kg

DRUGS (4)
  1. REVLIMID [Suspect]
     Indication: B-CELL LYMPHOMA
     Dosage: 21 IN 28 D
     Route: 048
     Dates: start: 20120905
  2. RITUXAN [Concomitant]
  3. VICODIN [Concomitant]
  4. O2 (ORNOF) [Concomitant]

REACTIONS (6)
  - Pulmonary embolism [None]
  - Deep vein thrombosis [None]
  - Ligament sprain [None]
  - Neutropenia [None]
  - Upper respiratory tract infection [None]
  - Thrombocytopenia [None]
